FAERS Safety Report 5835072-0 (Version None)
Quarter: 2008Q3

REPORT INFORMATION
  Report Type: 
  Country: None (occurrence: None)
  Receive Date: 20080805
  Receipt Date: 20080805
  Transmission Date: 20090109
  Serious: No
  Sender: FDA-Public Use
  Company Number: None

PATIENT
  Age: 53 Year
  Sex: Male
  Weight: 86.1834 kg

DRUGS (2)
  1. LEVAQUIN [Suspect]
     Indication: PROSTATITIS
     Dosage: 500 MG 1 DAILY PO
     Route: 048
     Dates: start: 20080708, end: 20080721
  2. LIPITOR [Concomitant]

REACTIONS (2)
  - EXERCISE TOLERANCE DECREASED [None]
  - TENDONITIS [None]
